FAERS Safety Report 6005077-8 (Version None)
Quarter: 2008Q4

REPORT INFORMATION
  Report Type: 
  Country: None (occurrence: None)
  Receive Date: 20081216
  Receipt Date: 20081209
  Transmission Date: 20090506
  Serious: Yes (Hospitalization)
  Sender: FDA-Public Use
  Company Number: PHHY2008MX31499

PATIENT
  Age: 76 Year
  Sex: Female

DRUGS (1)
  1. DIOVAN HCT [Suspect]
     Indication: HYPERTENSION
     Dosage: 160/12.5 MG/DAY
     Route: 048
     Dates: start: 20070401, end: 20081201

REACTIONS (2)
  - CARDIAC DISORDER [None]
  - DYSPNOEA [None]
